FAERS Safety Report 6493562-4 (Version None)
Quarter: 2009Q4

REPORT INFORMATION
  Report Type: 
  Country: None (occurrence: None)
  Receive Date: 20091214
  Receipt Date: 20091201
  Transmission Date: 20100525
  Serious: Yes (Hospitalization)
  Sender: FDA-Public Use
  Company Number: JP-TYCO HEALTHCARE/MALLINCKRODT-T200902126

PATIENT
  Age: 44 Year
  Sex: Female
  Weight: 60 kg

DRUGS (5)
  1. OPTIRAY 350 [Suspect]
     Indication: COMPUTERISED TOMOGRAM
     Dosage: 100 ML, SINGLE
     Route: 042
     Dates: start: 20081024, end: 20081024
  2. LOXOPROFEN SODIUM [Suspect]
     Indication: ABDOMINAL PAIN LOWER
     Dosage: 60 MG 1-2/DAY
     Route: 048
     Dates: start: 20080922, end: 20081023
  3. LOXOPROFEN SODIUM [Suspect]
     Dosage: 60 MG AS REQUIRED
     Route: 048
     Dates: start: 20091024
  4. REBAMIPIDE [Concomitant]
     Indication: ABDOMINAL PAIN LOWER
     Dosage: 100 MG 1-2/DAY
     Route: 048
     Dates: start: 20080922, end: 20081023
  5. REBAMIPIDE [Concomitant]
     Dosage: 100 MG AS REQUIRED
     Route: 048
     Dates: start: 20091024

REACTIONS (1)
  - RASH GENERALISED [None]
